FAERS Safety Report 4625125-7 (Version None)
Quarter: 2005Q2

REPORT INFORMATION
  Report Type: 
  Country: None (occurrence: None)
  Receive Date: 20050401
  Receipt Date: 20050322
  Transmission Date: 20051028
  Serious: Yes (Hospitalization)
  Sender: FDA-Public Use
  Company Number: US-GLAXOSMITHKLINE-A0550756A

PATIENT
  Age: 86 Year
  Sex: Male
  Weight: 61 kg

DRUGS (7)
  1. TUMS ULTRA TABLETS, ASSORTED BERRIES [Suspect]
     Indication: DYSPEPSIA
     Route: 048
  2. COREG [Concomitant]
     Indication: DRUG USE FOR UNKNOWN INDICATION
     Dosage: 25MG PER DAY
  3. OXYCONTIN [Concomitant]
     Indication: DRUG USE FOR UNKNOWN INDICATION
  4. NEURONTIN [Concomitant]
     Indication: DRUG USE FOR UNKNOWN INDICATION
     Dosage: 100MG THREE TIMES PER DAY
  5. FUROSAMIDE [Concomitant]
     Indication: DRUG USE FOR UNKNOWN INDICATION
     Dosage: 25MG PER DAY
  6. SPIRONOLACTONE [Concomitant]
     Indication: DRUG USE FOR UNKNOWN INDICATION
     Dosage: 25MG PER DAY
  7. LIPITOR [Concomitant]
     Indication: DRUG USE FOR UNKNOWN INDICATION
     Dosage: 40MG PER DAY

REACTIONS (5)
  - LEG AMPUTATION [None]
  - LOCALISED INFECTION [None]
  - MEDICATION ERROR [None]
  - STOMACH DISCOMFORT [None]
  - VOMITING [None]
